FAERS Safety Report 9514298 (Version 3)
Quarter: 2013Q4

REPORT INFORMATION
  Report Type: Spontaneous
  Country: IT (occurrence: IT)
  Receive Date: 20130911
  Receipt Date: 20131030
  Transmission Date: 20140711
  Serious: Yes (Hospitalization, Other)
  Sender: FDA-Public Use
  Company Number: IT-PFIZER INC-2013056896

PATIENT
  Age: 71 Year
  Sex: Male
  Weight: 80 kg

DRUGS (8)
  1. CORDARONE [Suspect]
     Indication: VENTRICULAR ARRHYTHMIA
     Dosage: 200 MG, DAILY
     Route: 048
     Dates: start: 20120110, end: 20130103
  2. OMEPRAZOLE [Concomitant]
     Dosage: UNK
  3. NEBIVOLOL [Concomitant]
     Dosage: UNK
     Dates: start: 20120112, end: 20130103
  4. ASA [Concomitant]
     Dosage: UNK
     Dates: end: 20130103
  5. ATORVASTATIN [Concomitant]
     Dosage: UNK
     Dates: end: 20130103
  6. ALLOPURINOL [Concomitant]
     Dosage: UNK
  7. FUROSEMIDE [Concomitant]
     Dosage: UNK
  8. INVESTIGATIONAL DRUG [Concomitant]
     Dosage: UNK
     Dates: start: 20110715, end: 20121103

REACTIONS (4)
  - Hypotension [Recovered/Resolved]
  - Hypothyroidism [Recovered/Resolved]
  - Bradycardia [Recovered/Resolved]
  - Syncope [Recovered/Resolved]
